FAERS Safety Report 12200023 (Version 2)
Quarter: 2016Q1

REPORT INFORMATION
  Report Type: Spontaneous
  Country: DE (occurrence: DE)
  Receive Date: 20160322
  Receipt Date: 20160330
  Transmission Date: 20160526
  Serious: Yes (Other)
  Sender: FDA-Public Use
  Company Number: PHHY2016DE037762

PATIENT
  Age: 58 Year
  Sex: Male

DRUGS (2)
  1. MARCUMAR [Concomitant]
     Active Substance: PHENPROCOUMON
     Indication: PRODUCT USED FOR UNKNOWN INDICATION
     Route: 065
  2. VALSARTAN. [Suspect]
     Active Substance: VALSARTAN
     Indication: CARDIAC FAILURE
     Route: 065

REACTIONS (19)
  - Blood urea increased [Unknown]
  - Gamma-glutamyltransferase increased [Unknown]
  - Blood bilirubin unconjugated increased [Unknown]
  - Fatigue [Recovering/Resolving]
  - Coronary artery disease [Unknown]
  - Hypotension [Unknown]
  - N-terminal prohormone brain natriuretic peptide increased [Recovering/Resolving]
  - Hypercholesterolaemia [Unknown]
  - Cardiomegaly [Unknown]
  - Blood uric acid increased [Unknown]
  - Blood creatinine increased [Unknown]
  - Cardiac failure [Unknown]
  - Bilirubin conjugated increased [Unknown]
  - Physical disability [Recovering/Resolving]
  - Ejection fraction decreased [Unknown]
  - Type 2 diabetes mellitus [Unknown]
  - Weight increased [Recovering/Resolving]
  - Dyspnoea [Unknown]
  - Cardiomyopathy [Unknown]
